FAERS Safety Report 7313912-6 (Version None)
Quarter: 2011Q1

REPORT INFORMATION
  Report Type: 
  Country: None (occurrence: None)
  Receive Date: 20110216
  Receipt Date: 20110216
  Transmission Date: 20110831
  Serious: Yes (Hospitalization)
  Sender: FDA-Public Use
  Company Number: None

PATIENT
  Sex: Male
  Weight: 76.8 kg

DRUGS (1)
  1. METHYLPREDNISOLONE [Suspect]
     Dosage: 120 MG

REACTIONS (3)
  - HEADACHE [None]
  - NUCHAL RIGIDITY [None]
  - CHEST PAIN [None]
